FAERS Safety Report 4541048-6 (Version None)
Quarter: 2004Q4

REPORT INFORMATION
  Report Type: 
  Country: None (occurrence: None)
  Receive Date: 20041228
  Receipt Date: 20041126
  Transmission Date: 20050328
  Serious: Yes (Other)
  Sender: FDA-Public Use
  Company Number: 2004090165

PATIENT
  Sex: Female
  Weight: 64.8644 kg

DRUGS (6)
  1. CELEBREX [Suspect]
     Indication: RHEUMATOID ARTHRITIS
     Dosage: 200 MG (200 MG, DAILY INTERVAL: EVERY DAY), ORAL
     Route: 048
     Dates: start: 20030211
  2. ROFECOXIB [Suspect]
     Indication: RHEUMATOID ARTHRITIS
     Dosage: ORAL
     Route: 048
     Dates: start: 19970101
  3. DIURETICS (DIURETICS) [Concomitant]
  4. BETAMETHSONE (BETAMETHASONE) [Concomitant]
  5. PREDNISONE [Concomitant]
  6. KARVEA HCT (HYDROCHLOROTHIAZIDE, IRBESARTAN) [Concomitant]

REACTIONS (12)
  - ASTHENIA [None]
  - BLOOD PRESSURE INCREASED [None]
  - CROHN'S DISEASE [None]
  - DIZZINESS [None]
  - HEADACHE [None]
  - HYPOAESTHESIA ORAL [None]
  - INFLUENZA LIKE ILLNESS [None]
  - MALAISE [None]
  - OESOPHAGEAL STENOSIS [None]
  - PARAESTHESIA ORAL [None]
  - TRANSIENT ISCHAEMIC ATTACK [None]
  - VOMITING [None]
